FAERS Safety Report 13977015 (Version 1)
Quarter: 2017Q3

REPORT INFORMATION
  Report Type: Spontaneous
  Country: US (occurrence: US)
  Receive Date: 20170915
  Receipt Date: 20170915
  Transmission Date: 20171128
  Serious: No
  Sender: FDA-Public Use
  Company Number: US-ROCHE-723437

PATIENT
  Age: 55 Year
  Sex: Female

DRUGS (2)
  1. FEMARA [Suspect]
     Active Substance: LETROZOLE
     Indication: BREAST CANCER METASTATIC
     Route: 048
  2. HERCEPTIN [Suspect]
     Active Substance: TRASTUZUMAB
     Indication: BREAST CANCER METASTATIC
     Dosage: DOSING FREQ: Q 3 WEEKS
     Route: 042

REACTIONS (2)
  - Onychoclasis [Unknown]
  - Autoimmune thyroiditis [Unknown]
